FAERS Safety Report 6140161-X (Version None)
Quarter: 2009Q1

REPORT INFORMATION
  Report Type: 
  Country: None (occurrence: None)
  Receive Date: 20090324
  Receipt Date: 20090313
  Transmission Date: 20090719
  Serious: Yes (Death, Life-Threatening, Hospitalization, Disabling)
  Sender: FDA-Public Use
  Company Number: 2009AL001537

PATIENT
  Age: 4 Month
  Sex: Female

DRUGS (7)
  1. SPIRONOLACTONE [Suspect]
     Dosage: 3 MG; QD
  2. FUROSEMIDE [Concomitant]
  3. ZANTAC [Concomitant]
  4. POTASSIUM CHLORIDE [Concomitant]
  5. INTRAVENOUS FLUIDS [Concomitant]
  6. SALINE BUFFERED [Concomitant]
  7. ABDEC [Concomitant]

REACTIONS (18)
  - AGITATION [None]
  - BLOOD CREATININE INCREASED [None]
  - BLOOD POTASSIUM DECREASED [None]
  - CARDIAC ARREST [None]
  - CARDIOMEGALY [None]
  - CRYING [None]
  - CYANOSIS [None]
  - DIARRHOEA [None]
  - DRUG TOXICITY [None]
  - INCREASED UPPER AIRWAY SECRETION [None]
  - IRRITABILITY [None]
  - LUNG DISORDER [None]
  - OVERDOSE [None]
  - PYREXIA [None]
  - RESPIRATORY DISTRESS [None]
  - SALIVARY HYPERSECRETION [None]
  - WHEEZING [None]
  - WHITE BLOOD CELL COUNT INCREASED [None]
